FAERS Safety Report 11704452 (Version 2)
Quarter: 2015Q4

REPORT INFORMATION
  Report Type: Spontaneous
  Country: US (occurrence: US)
  Receive Date: 20151106
  Receipt Date: 20151112
  Transmission Date: 20160304
  Serious: No
  Sender: FDA-Public Use
  Company Number: US-PFIZER INC-2015361976

PATIENT
  Age: 61 Year
  Sex: Male
  Weight: 97.96 kg

DRUGS (4)
  1. GABAPENTIN. [Suspect]
     Active Substance: GABAPENTIN
     Indication: NEUROPATHY PERIPHERAL
     Dosage: 1200 MG ( 300MG CAPSULES X4 CAPSULES), 3X/DAY FOR TOTAL OF 3600MG/DAY
     Dates: start: 201412
  2. TEGRETOL [Concomitant]
     Active Substance: CARBAMAZEPINE
     Dosage: 200 MG, 2X/DAY
  3. GABAPENTIN. [Suspect]
     Active Substance: GABAPENTIN
     Dosage: 1200MG( 600MG CAPSULES X 2 CAPSULES), 3X/DAY FOR TOTAL OF 3600MG/DAY
  4. ENDOMYCIN [Concomitant]
     Dosage: UNK

REACTIONS (2)
  - Weight increased [Not Recovered/Not Resolved]
  - Product use issue [Unknown]
